FAERS Safety Report 22349374 (Version 1)
Quarter: 2023Q2

REPORT INFORMATION
  Report Type: Report from Study
  Country: CO (occurrence: CO)
  Receive Date: 20230522
  Receipt Date: 20230522
  Transmission Date: 20230721
  Serious: Yes (Hospitalization, Other)
  Sender: FDA-Public Use
  Company Number: CO-AstraZeneca-2023A114247

PATIENT
  Age: 62 Day
  Sex: Female
  Weight: 3 kg

DRUGS (3)
  1. SYNAGIS [Suspect]
     Active Substance: PALIVIZUMAB
     Indication: Antiviral prophylaxis
     Dosage: 15 MG/ KG MONTHLY
     Route: 030
     Dates: start: 20230404
  2. SYNAGIS [Suspect]
     Active Substance: PALIVIZUMAB
     Route: 030
     Dates: start: 20230508
  3. PNEUMOCOCCAL VACCINE POLYVALENT NOS [Suspect]
     Active Substance: PNEUMOCOCCAL VACCINE POLYVALENT
     Indication: Product used for unknown indication

REACTIONS (4)
  - Body temperature abnormal [Recovering/Resolving]
  - Pneumonia [Recovering/Resolving]
  - Cyanosis [Unknown]
  - Somnolence [Unknown]

NARRATIVE: CASE EVENT DATE: 20230508
